FAERS Safety Report 7555046-1 (Version None)
Quarter: 2011Q2

REPORT INFORMATION
  Report Type: 
  Country: None (occurrence: None)
  Receive Date: 20110617
  Receipt Date: 20110613
  Transmission Date: 20111010
  Serious: Yes (Other)
  Sender: FDA-Public Use
  Company Number: US-TEVA-286138USA

PATIENT
  Age: 83 Year
  Sex: Male

DRUGS (1)
  1. FLUOROURACIL [Suspect]
     Indication: OESOPHAGEAL ADENOCARCINOMA

REACTIONS (1)
  - MYOPERICARDITIS [None]
